FAERS Safety Report 6595856-0 (Version None)
Quarter: 2010Q1

REPORT INFORMATION
  Report Type: 
  Country: None (occurrence: None)
  Receive Date: 20100219
  Receipt Date: 20100219
  Transmission Date: 20100710
  Serious: Yes (Other)
  Sender: FDA-Public Use
  Company Number: None

PATIENT
  Age: 74 Year
  Sex: Female
  Weight: 74.3899 kg

DRUGS (1)
  1. LAVAQUIN [Suspect]
     Indication: BRONCHITIS
     Dosage: 1 TABLET DAILY DAILY 750 MG 20 7 DAY USE
     Dates: start: 20091030

REACTIONS (1)
  - PAIN IN EXTREMITY [None]
